FAERS Safety Report 24970450 (Version 2)
Quarter: 2025Q1

REPORT INFORMATION
  Report Type: Spontaneous
  Country: IN (occurrence: IN)
  Receive Date: 20250214
  Receipt Date: 20250224
  Transmission Date: 20250409
  Serious: Yes (Congenital Anomaly, Other)
  Sender: TORRENT PHARMA INC.
  Company Number: IN-TORRENT-00003842

PATIENT
  Sex: Female

DRUGS (1)
  1. OLANZAPINE [Suspect]
     Active Substance: OLANZAPINE
     Indication: Product used for unknown indication
     Route: 064

REACTIONS (1)
  - Tracheo-oesophageal fistula [Unknown]
